FAERS Safety Report 20235415 (Version 1)
Quarter: 2021Q4

REPORT INFORMATION
  Report Type: Spontaneous
  Country: US (occurrence: US)
  Receive Date: 20211228
  Receipt Date: 20211228
  Transmission Date: 20220303
  Serious: Yes (Hospitalization, Other)
  Sender: FDA-Public Use
  Company Number: US-APOTEX-2021AP047234

PATIENT
  Age: 36 Year
  Sex: Male

DRUGS (3)
  1. DASATINIB [Suspect]
     Active Substance: DASATINIB
     Indication: Chronic eosinophilic leukaemia
     Dosage: 140 MILLIGRAM, QD
     Route: 065
  2. IMATINIB [Suspect]
     Active Substance: IMATINIB
     Indication: Chronic eosinophilic leukaemia
     Dosage: 200 MILLIGRAM, QD
     Route: 065
  3. IMATINIB [Suspect]
     Active Substance: IMATINIB
     Dosage: 100 MILLIGRAM, QD
     Route: 065

REACTIONS (6)
  - Cardiac tamponade [Recovered/Resolved]
  - Pleural effusion [Unknown]
  - Eosinophil count increased [Recovered/Resolved]
  - Dermatitis [Unknown]
  - Arthralgia [Unknown]
  - Drug ineffective [Unknown]
